FAERS Safety Report 5533159-3 (Version None)
Quarter: 2007Q4

REPORT INFORMATION
  Report Type: 
  Country: None (occurrence: None)
  Receive Date: 20071129
  Receipt Date: 20071129
  Transmission Date: 20080405
  Serious: No
  Sender: FDA-Public Use
  Company Number: None

PATIENT
  Age: 12 Year
  Sex: Female

DRUGS (5)
  1. HYDROCORTISONE [Suspect]
     Indication: ADVERSE DRUG REACTION
     Dosage: 20 MG, 1 IN 1 DAYS, ORAL : 10 MG, 1 IN 1 DAYS, ORAL
     Route: 048
     Dates: start: 20071002, end: 20071105
  2. HYDROCORTISONE [Suspect]
     Indication: ADVERSE DRUG REACTION
     Dosage: 20 MG, 1 IN 1 DAYS, ORAL : 10 MG, 1 IN 1 DAYS, ORAL
     Route: 048
     Dates: start: 20071105
  3. ACYCLOVIR [Concomitant]
  4. RISPERDAL [Concomitant]
  5. CELEXA [Concomitant]

REACTIONS (2)
  - NERVOUS SYSTEM DISORDER [None]
  - PSYCHOMOTOR HYPERACTIVITY [None]
